FAERS Safety Report 22280460 (Version 2)
Quarter: 2023Q2

REPORT INFORMATION
  Report Type: Report from Study
  Country: US (occurrence: US)
  Receive Date: 20230503
  Receipt Date: 20230512
  Transmission Date: 20230721
  Serious: Yes (Life-Threatening, Hospitalization)
  Sender: FDA-Public Use
  Company Number: US-BEH-2023158131

PATIENT
  Sex: Male
  Weight: 95 kg

DRUGS (17)
  1. BERIPLEX P/N [Suspect]
     Active Substance: COAGULATION FACTOR IX HUMAN\COAGULATION FACTOR VII HUMAN\COAGULATION FACTOR X HUMAN\PROTEIN C\PROTEI
     Indication: Traumatic haemorrhage
     Dosage: 3000 INTERNATIONAL UNIT, SINGLE
     Route: 042
     Dates: start: 20230426, end: 20230426
  2. BERIPLEX P/N [Suspect]
     Active Substance: COAGULATION FACTOR IX HUMAN\COAGULATION FACTOR VII HUMAN\COAGULATION FACTOR X HUMAN\PROTEIN C\PROTEI
     Indication: Traumatic haemorrhage
     Dosage: 3000 INTERNATIONAL UNIT, SINGLE
     Route: 042
     Dates: start: 20230426, end: 20230426
  3. PLACEBO [Suspect]
     Active Substance: UNSPECIFIED INGREDIENT
     Indication: Traumatic haemorrhage
     Dosage: 3000 INTERNATIONAL UNIT, SINGLE
     Route: 042
     Dates: start: 20230426, end: 20230426
  4. PLACEBO [Suspect]
     Active Substance: UNSPECIFIED INGREDIENT
     Indication: Traumatic haemorrhage
     Dosage: 3000 INTERNATIONAL UNIT, SINGLE
     Route: 042
     Dates: start: 20230426, end: 20230426
  5. SODIUM CHLORIDE [Concomitant]
     Active Substance: SODIUM CHLORIDE
     Indication: Traumatic haemorrhage
     Dosage: 600 MILLILITER
     Dates: start: 20230426
  6. SODIUM CHLORIDE [Concomitant]
     Active Substance: SODIUM CHLORIDE
     Dosage: 500 MILLILITER
     Dates: start: 20230427
  7. SODIUM CHLORIDE [Concomitant]
     Active Substance: SODIUM CHLORIDE
     Dosage: 500 MILLILITER
     Dates: start: 20230427
  8. SODIUM CHLORIDE [Concomitant]
     Active Substance: SODIUM CHLORIDE
     Dosage: 1000 MILLILITER
     Dates: start: 20230427
  9. SODIUM CHLORIDE [Concomitant]
     Active Substance: SODIUM CHLORIDE
     Dosage: 1000 MILLILITER
     Dates: start: 20230427
  10. HUMAN PLASMA [Concomitant]
     Active Substance: HUMAN PLASMA
     Indication: Traumatic haemorrhage
     Dosage: 307 MILLILITER
     Dates: start: 20230426
  11. HUMAN RED BLOOD CELL [Concomitant]
     Active Substance: HUMAN RED BLOOD CELL
     Indication: Traumatic haemorrhage
     Dosage: 300 MILLILITER
     Dates: start: 20230426
  12. TRANEXAMIC ACID [Concomitant]
     Active Substance: TRANEXAMIC ACID
     Indication: Traumatic haemorrhage
     Dosage: 2000 MILLIGRAM
     Dates: start: 20230426
  13. WHOLE BLOOD ACD [Concomitant]
     Indication: Traumatic haemorrhage
     Dosage: 500 MILLILITER
     Dates: start: 20230426
  14. WHOLE BLOOD ACD [Concomitant]
     Dosage: 500 MILLILITER
     Dates: start: 20230426
  15. WHOLE BLOOD ACD [Concomitant]
     Dosage: 500 MILLILITER
     Dates: start: 20230426
  16. WHOLE BLOOD ACD [Concomitant]
     Dosage: 500 MILLILITER
     Dates: start: 20230426
  17. ALBUMIN HUMAN [Concomitant]
     Active Substance: ALBUMIN HUMAN
     Indication: Traumatic haemorrhage
     Dosage: 200 MILLILITER
     Dates: start: 20230427

REACTIONS (1)
  - Pulmonary embolism [Not Recovered/Not Resolved]

NARRATIVE: CASE EVENT DATE: 20230427
